FAERS Safety Report 6707926-4 (Version None)
Quarter: 2010Q2

REPORT INFORMATION
  Report Type: 
  Country: None (occurrence: None)
  Receive Date: 20100429
  Receipt Date: 20100415
  Transmission Date: 20101027
  Serious: No
  Sender: FDA-Public Use
  Company Number: 2010EU000657

PATIENT
  Sex: Female

DRUGS (2)
  1. TACROLIMUS [Suspect]
     Indication: DERMATITIS ATOPIC
     Dates: start: 20080401
  2. PIMECROLIMUS  (PIMECROLIMUS, PIMECROLIMUS) [Concomitant]

REACTIONS (1)
  - HYPERVENTILATION [None]
